FAERS Safety Report 6223544-9 (Version None)
Quarter: 2009Q2

REPORT INFORMATION
  Report Type: 
  Country: None (occurrence: None)
  Receive Date: 20090610
  Receipt Date: 20090601
  Transmission Date: 20091009
  Serious: Yes (Hospitalization)
  Sender: FDA-Public Use
  Company Number: TPA2009A01248

PATIENT
  Age: 54 Year
  Sex: Male
  Weight: 129.2 kg

DRUGS (9)
  1. ACTOS [Suspect]
     Indication: TYPE 2 DIABETES MELLITUS
     Dosage: 45 MG, 1 IN 1 D, PER ORAL
     Route: 048
     Dates: end: 20090519
  2. NOVOLOG [Concomitant]
  3. NPH PURIFIED PORK ISOPHANE INSULIN [Concomitant]
  4. DEPAKOTE [Concomitant]
  5. LASIX [Concomitant]
  6. GEMFIBROZIL [Concomitant]
  7. POTASSIUM CHLORIDE [Concomitant]
  8. ADVAIR DISKUS 100/50 [Concomitant]
  9. SPIRIVA [Concomitant]

REACTIONS (5)
  - BLOOD CREATINE PHOSPHOKINASE INCREASED [None]
  - CELLULITIS [None]
  - CHEST PAIN [None]
  - CONTRAINDICATION TO MEDICAL TREATMENT [None]
  - REFUSAL OF TREATMENT BY PATIENT [None]
